FAERS Safety Report 4697102-1 (Version None)
Quarter: 2005Q2

REPORT INFORMATION
  Report Type: 
  Country: None (occurrence: None)
  Receive Date: 20050620
  Receipt Date: 20050613
  Transmission Date: 20051028
  Serious: Yes (Other)
  Sender: FDA-Public Use
  Company Number: PHEH2005US06763

PATIENT
  Age: 45 Year
  Sex: Female
  Weight: 99.8 kg

DRUGS (2)
  1. LAMISIL AT [Suspect]
     Indication: SKIN FISSURES
     Dosage: TOPICAL
     Route: 061
     Dates: start: 20050608
  2. PSYCHOTROPIC AGENTS [Concomitant]

REACTIONS (5)
  - ABASIA [None]
  - ERYTHEMA [None]
  - OEDEMA PERIPHERAL [None]
  - PARAESTHESIA [None]
  - THROMBOSIS [None]
